FAERS Safety Report 4485821-1 (Version None)
Quarter: 2004Q3

REPORT INFORMATION
  Report Type: 
  Country: None (occurrence: None)
  Receive Date: 20040921
  Receipt Date: 20031021
  Transmission Date: 20050211
  Serious: Yes (Death, Hospitalization)
  Sender: FDA-Public Use
  Company Number: 163-20785-03100505

PATIENT
  Age: 50 Year
  Sex: Female
  Weight: 67 kg

DRUGS (13)
  1. THALOMID [Suspect]
     Indication: RENAL CANCER METASTATIC
     Dosage: 100 MG, QHS, ORAL
     Route: 048
     Dates: start: 20030922, end: 20031020
  2. INTERLEUKIN-2 (INTERLEUKIN-2) (UNKNOWN) [Suspect]
     Indication: RENAL CANCER METASTATIC
     Dosage: 16.5 IUM, M-F X 6WKS
     Dates: start: 20030922, end: 20031020
  3. DILAUDID [Concomitant]
  4. TYLENOL [Concomitant]
  5. KYTRIL [Concomitant]
  6. PEPCID (FUROSEMIDE) [Concomitant]
  7. NAPROSYN (NAPROSYN) [Concomitant]
  8. COMPAZINE [Concomitant]
  9. GLUCOPHAGE [Concomitant]
  10. SORBITOL 70%  SOLUTION (SORBITOL) [Concomitant]
  11. PERCOCET 2.5/325MG (OXYCOCET) [Concomitant]
  12. REGLAN [Concomitant]
  13. AMARYL [Concomitant]

REACTIONS (19)
  - ABASIA [None]
  - ANAEMIA [None]
  - ANOREXIA [None]
  - ASTHENIA [None]
  - BLOOD ALKALINE PHOSPHATASE INCREASED [None]
  - BLOOD GLUCOSE INCREASED [None]
  - BLOOD LACTATE DEHYDROGENASE INCREASED [None]
  - CONFUSIONAL STATE [None]
  - CONSTIPATION [None]
  - DEATH [None]
  - DISEASE PROGRESSION [None]
  - DIZZINESS [None]
  - FATIGUE [None]
  - LABORATORY TEST [None]
  - LETHARGY [None]
  - NAUSEA [None]
  - PAIN [None]
  - VOMITING [None]
  - WEIGHT DECREASED [None]
